FAERS Safety Report 5229699-7 (Version None)
Quarter: 2007Q1

REPORT INFORMATION
  Report Type: 
  Country: None (occurrence: None)
  Receive Date: 20070201
  Receipt Date: 20070116
  Transmission Date: 20070707
  Serious: Yes (Other)
  Sender: FDA-Public Use
  Company Number: CAR_0107_2007

PATIENT
  Age: 62 Year
  Sex: Female
  Weight: 68.0396 kg

DRUGS (14)
  1. DICLOFENAC SODIUM [Suspect]
     Indication: OSTEOARTHRITIS
     Dosage: 75 MG QAM PO
     Route: 048
     Dates: start: 20060101, end: 20061214
  2. DICLOFENAC SODIUM [Suspect]
     Indication: OSTEOARTHRITIS
     Dosage: 75 MG QDAY PO
     Route: 048
     Dates: start: 20060101, end: 20060101
  3. COZAAR [Concomitant]
  4. KIRKLAND'S BRAND MULTIVITAMIN [Concomitant]
  5. KIRKLAND'S BAND VITAMIN C [Concomitant]
  6. KIRKLAND'S BRAND CALCIUM CITRATE WITH VITAMIN D [Concomitant]
  7. KIRKLAND'S BRAND MAGNESIUM AND ZINC [Concomitant]
  8. KIRKLAND'S BRAND GLUCOSAMINE HCL/CHONDROITIN SULFATE [Concomitant]
  9. LONG'S BRAND LORATADINE [Concomitant]
  10. AMITRIP [Concomitant]
  11. MENEST [Concomitant]
  12. PROMETRIUM [Concomitant]
  13. LIPITOR [Concomitant]
  14. PREVACID [Concomitant]

REACTIONS (17)
  - ASTHENIA [None]
  - CHEST PAIN [None]
  - CHILLS [None]
  - DYSURIA [None]
  - FATIGUE [None]
  - FEELING ABNORMAL [None]
  - HEADACHE [None]
  - HEPATIC ENZYME ABNORMAL [None]
  - HYPERAESTHESIA [None]
  - ILL-DEFINED DISORDER [None]
  - LOSS OF CONSCIOUSNESS [None]
  - NAUSEA [None]
  - PAIN OF SKIN [None]
  - RED BLOOD CELL SEDIMENTATION RATE ABNORMAL [None]
  - RENAL IMPAIRMENT [None]
  - VISUAL DISTURBANCE [None]
  - WHITE BLOOD CELL COUNT INCREASED [None]
